FAERS Safety Report 5284456-0 (Version None)
Quarter: 2007Q2

REPORT INFORMATION
  Report Type: 
  Country: None (occurrence: None)
  Receive Date: 20070403
  Receipt Date: 20070326
  Transmission Date: 20071010
  Serious: Yes (Other)
  Sender: FDA-Public Use
  Company Number: FRWYE232428MAR07

PATIENT
  Sex: Male

DRUGS (2)
  1. EFFEXOR [Suspect]
     Dosage: 250 MG TOTAL DAILY
     Route: 048
     Dates: start: 20031201, end: 20050301
  2. EFFEXOR [Suspect]
     Dosage: 100 MG TOTAL DAILY
     Route: 048
     Dates: start: 20050301

REACTIONS (5)
  - ALANINE AMINOTRANSFERASE INCREASED [None]
  - BILIARY TRACT DISORDER [None]
  - CHOLANGITIS SCLEROSING [None]
  - GAMMA-GLUTAMYLTRANSFERASE INCREASED [None]
  - HEPATIC INFILTRATION EOSINOPHILIC [None]
